FAERS Safety Report 23373994 (Version 1)
Quarter: 2024Q1

REPORT INFORMATION
  Report Type: Spontaneous
  Country: DE (occurrence: DE)
  Receive Date: 20240105
  Receipt Date: 20240105
  Transmission Date: 20240409
  Serious: Yes (Other)
  Sender: FDA-Public Use
  Company Number: DE-BAXTER-2023BAX028250

PATIENT

DRUGS (18)
  1. BENDAMUSTINE [Suspect]
     Active Substance: BENDAMUSTINE
     Indication: Plasma cell myeloma refractory
     Dosage: UNK, SIXTH LINE TREATMENT
     Route: 065
     Dates: start: 20151221, end: 20160321
  2. BORTEZOMIB [Suspect]
     Active Substance: BORTEZOMIB
     Dosage: UNK, FIFTH LINE TREATMENT
     Route: 065
     Dates: start: 20130925, end: 20151110
  3. BORTEZOMIB [Suspect]
     Active Substance: BORTEZOMIB
     Dosage: UNK, FIRST LINE TREATMENT
     Route: 065
     Dates: start: 20090701, end: 20091001
  4. BORTEZOMIB [Suspect]
     Active Substance: BORTEZOMIB
     Dosage: UNK, FOURTH LINE TREATMENT
     Route: 065
     Dates: start: 20130722, end: 201308
  5. BORTEZOMIB [Suspect]
     Active Substance: BORTEZOMIB
     Indication: Plasma cell myeloma refractory
     Dosage: UNK, THIRD LINE TREATMENT
     Route: 065
     Dates: start: 20130124, end: 20130701
  6. CYCLOPHOSPHAMIDE [Suspect]
     Active Substance: CYCLOPHOSPHAMIDE
     Indication: Plasma cell myeloma refractory
     Dosage: UNK, FIRST LINE TREATMENT
     Route: 065
     Dates: start: 20090701, end: 20091001
  7. CARFILZOMIB [Suspect]
     Active Substance: CARFILZOMIB
     Indication: Plasma cell myeloma refractory
     Dosage: UNK, SIXTH LINE TREATMENT
     Route: 065
     Dates: start: 20151221, end: 20160321
  8. DEXAMETHASONE [Suspect]
     Active Substance: DEXAMETHASONE
     Indication: Plasma cell myeloma refractory
     Dosage: UNK, FIFTH LINE TREATMENT
     Route: 065
     Dates: start: 20130925, end: 20151110
  9. DEXAMETHASONE [Suspect]
     Active Substance: DEXAMETHASONE
     Dosage: UNK, FIRST LINE TREATMENT
     Route: 065
     Dates: start: 20090701, end: 20091001
  10. DEXAMETHASONE [Suspect]
     Active Substance: DEXAMETHASONE
     Dosage: UNK, ONGOING
     Route: 065
     Dates: start: 20200115
  11. DEXAMETHASONE [Suspect]
     Active Substance: DEXAMETHASONE
     Dosage: UNK, THIRD LINE TREATMENT
     Route: 065
     Dates: start: 20130124, end: 20130701
  12. DOXORUBICIN [Suspect]
     Active Substance: DOXORUBICIN
     Indication: Plasma cell myeloma refractory
     Dosage: UNK, THIRD LINE TREATMENT
     Route: 065
     Dates: start: 20130124, end: 20130701
  13. DARATUMUMAB [Suspect]
     Active Substance: DARATUMUMAB
     Indication: Plasma cell myeloma refractory
     Dosage: UNK, ONGOING
     Route: 065
     Dates: start: 20200115
  14. MELPHALAN [Suspect]
     Active Substance: MELPHALAN
     Dosage: UNK, FOURTH LINE TEATMENT
     Route: 065
     Dates: start: 20130722, end: 201308
  15. MELPHALAN [Suspect]
     Active Substance: MELPHALAN
     Indication: Plasma cell myeloma refractory
     Dosage: UNK, SECOND LINE TEATMENT
     Route: 065
     Dates: start: 20091101, end: 20091201
  16. POMALIDOMIDE [Suspect]
     Active Substance: POMALIDOMIDE
     Indication: Plasma cell myeloma refractory
     Dosage: UNK, ONGOING
     Route: 065
     Dates: start: 20200115
  17. THALIDOMIDE [Suspect]
     Active Substance: THALIDOMIDE
     Indication: Plasma cell myeloma refractory
     Dosage: UNK, FIFTH LINE TREATMENT
     Route: 065
     Dates: start: 20130925, end: 20151110
  18. VORINOSTAT [Suspect]
     Active Substance: VORINOSTAT
     Indication: Plasma cell myeloma refractory
     Dosage: UNK, THIRD LINE TREATMENT
     Route: 065
     Dates: start: 20130124, end: 20130701

REACTIONS (1)
  - Plasma cell myeloma [Unknown]
